FAERS Safety Report 9840644 (Version 1)
Quarter: 2014Q1

REPORT INFORMATION
  Report Type: Spontaneous
  Country: US (occurrence: US)
  Receive Date: 20140124
  Receipt Date: 20140124
  Transmission Date: 20141002
  Serious: No
  Sender: FDA-Public Use
  Company Number: US-PFIZER INC-2014021489

PATIENT
  Age: 65 Year
  Sex: Female
  Weight: 61.22 kg

DRUGS (2)
  1. LYRICA [Suspect]
     Indication: PAIN
     Dosage: 50 MG, 2X/DAY
  2. LYRICA [Suspect]
     Dosage: 100 MG, 3X/DAY
     Dates: start: 20140103, end: 20140117

REACTIONS (5)
  - Hypersensitivity [Recovered/Resolved]
  - Rash [Recovered/Resolved]
  - Dizziness [Recovering/Resolving]
  - Middle insomnia [Unknown]
  - Chills [Unknown]
